FAERS Safety Report 6907401-8 (Version None)
Quarter: 2010Q3

REPORT INFORMATION
  Report Type: 
  Country: None (occurrence: None)
  Receive Date: 20100805
  Receipt Date: 20100803
  Transmission Date: 20110219
  Serious: Yes (Other)
  Sender: FDA-Public Use
  Company Number: US-ASTRAZENECA-2008UW04317

PATIENT
  Age: 12677 Day
  Sex: Female
  Weight: 108.9 kg

DRUGS (11)
  1. SEROQUEL [Suspect]
     Indication: SLEEP DISORDER
     Route: 048
     Dates: start: 19990101, end: 20051101
  2. SEROQUEL [Suspect]
     Dosage: 25-100 MG
     Route: 048
     Dates: start: 20011206, end: 20050902
  3. SEROQUEL [Suspect]
     Dosage: 25-100 MG
     Route: 048
     Dates: start: 20011206, end: 20020402
  4. SEROQUEL [Suspect]
     Dosage: 1 PILL A DAY
     Route: 048
     Dates: start: 20050819
  5. CENESTIN [Concomitant]
     Dates: start: 20060101
  6. OMEPRAZOLE [Concomitant]
     Indication: NAUSEA
     Dosage: 20 MG - 40 MG DAILY
     Dates: start: 20060101
  7. HYDROCHLOROTHIAZIDE [Concomitant]
     Dates: start: 20060101
  8. LYRICA [Concomitant]
     Dates: start: 20060101
  9. CYMBALTA [Concomitant]
     Indication: FIBROMYALGIA
     Dosage: 60 MG - 120 MG DAILY
     Dates: start: 20070101
  10. FLEXERIL [Concomitant]
     Indication: FIBROMYALGIA
     Route: 048
     Dates: start: 20050819
  11. NICOTINE [Concomitant]
     Dosage: STRENGTH: 14 MG- 21 MG
     Dates: start: 20050819

REACTIONS (12)
  - BLOOD CHOLESTEROL INCREASED [None]
  - BLOOD GLUCOSE INCREASED [None]
  - BLOOD TRIGLYCERIDES INCREASED [None]
  - DIABETES MELLITUS [None]
  - DIABETES MELLITUS INADEQUATE CONTROL [None]
  - DIABETIC COMPLICATION [None]
  - DIABETIC NEUROPATHY [None]
  - HYPERGLYCAEMIA [None]
  - HYPERLIPIDAEMIA [None]
  - OBESITY [None]
  - TYPE 2 DIABETES MELLITUS [None]
  - WEIGHT INCREASED [None]
